FAERS Safety Report 12971364 (Version 1)
Quarter: 2016Q4

REPORT INFORMATION
  Report Type: Spontaneous
  Country: US (occurrence: US)
  Receive Date: 20161123
  Receipt Date: 20161123
  Transmission Date: 20170207
  Serious: No
  Sender: FDA-Public Use
  Company Number: US-JAZZ-2016-US-019833

PATIENT
  Sex: Female

DRUGS (32)
  1. XYREM [Suspect]
     Active Substance: SODIUM OXYBATE
     Dosage: 3 G, BID
     Route: 048
     Dates: start: 201604
  2. VITAMIN D                          /00107901/ [Concomitant]
     Active Substance: ERGOCALCIFEROL
  3. MOBIC [Concomitant]
     Active Substance: MELOXICAM
  4. SUDAFED [Concomitant]
     Active Substance: PSEUDOEPHEDRINE HYDROCHLORIDE
  5. SYNTHROID [Concomitant]
     Active Substance: LEVOTHYROXINE SODIUM
  6. TRAMADOL HCL [Concomitant]
     Active Substance: TRAMADOL HYDROCHLORIDE
  7. XYREM [Suspect]
     Active Substance: SODIUM OXYBATE
     Dosage: DOSE ADJUSTMENTS
     Route: 048
     Dates: start: 201412, end: 201604
  8. MIRAPEX [Concomitant]
     Active Substance: PRAMIPEXOLE DIHYDROCHLORIDE
  9. ATIVAN [Concomitant]
     Active Substance: LORAZEPAM
  10. EPINEPHRINE. [Concomitant]
     Active Substance: EPINEPHRINE
  11. RESTASIS [Concomitant]
     Active Substance: CYCLOSPORINE
  12. PROAIR HFA [Concomitant]
     Active Substance: ALBUTEROL SULFATE
  13. CELEBREX [Concomitant]
     Active Substance: CELECOXIB
  14. NATURE-THROID [Concomitant]
     Active Substance: THYROID, PORCINE
  15. DIPHENHYDRAMINE. [Concomitant]
     Active Substance: DIPHENHYDRAMINE
  16. CLA [Concomitant]
  17. OSTEO BI-FLEX                      /01431201/ [Concomitant]
  18. FLEXERIL [Concomitant]
     Active Substance: CYCLOBENZAPRINE HYDROCHLORIDE
  19. ZYRTEC [Concomitant]
     Active Substance: CETIRIZINE HYDROCHLORIDE
  20. XYREM [Suspect]
     Active Substance: SODIUM OXYBATE
     Indication: NARCOLEPSY
     Dosage: 3.75 G, BID
     Route: 048
     Dates: start: 201410, end: 201412
  21. TRAMADOL. [Concomitant]
     Active Substance: TRAMADOL
  22. TURMERIC                           /01079601/ [Concomitant]
     Active Substance: TURMERIC
  23. CYTOMEL [Concomitant]
     Active Substance: LIOTHYRONINE SODIUM
  24. ZANTAC [Concomitant]
     Active Substance: RANITIDINE HYDROCHLORIDE
  25. OMEPRAZOLE. [Concomitant]
     Active Substance: OMEPRAZOLE
  26. EVENING PRIMROSE [Concomitant]
  27. FLONASE                            /00908302/ [Concomitant]
     Active Substance: MOMETASONE FUROATE
  28. MAGNESIUM GLUCEPTATE [Concomitant]
     Active Substance: MAGNESIUM GLUCEPTATE
  29. AMBIEN CR [Concomitant]
     Active Substance: ZOLPIDEM TARTRATE
  30. SCOPOLAMINE HBR [Concomitant]
     Active Substance: SCOPOLAMINE
  31. FISH OIL [Concomitant]
     Active Substance: FISH OIL
  32. VYVANSE [Concomitant]
     Active Substance: LISDEXAMFETAMINE DIMESYLATE

REACTIONS (4)
  - Insomnia [Not Recovered/Not Resolved]
  - Intervertebral disc disorder [Unknown]
  - Inflammation [Not Recovered/Not Resolved]
  - Pain in extremity [Not Recovered/Not Resolved]
